FAERS Safety Report 4545048-1 (Version None)
Quarter: 2005Q1

REPORT INFORMATION
  Report Type: 
  Country: None (occurrence: None)
  Receive Date: 20050103
  Receipt Date: 20041228
  Transmission Date: 20050727
  Serious: Yes (Hospitalization)
  Sender: FDA-Public Use
  Company Number: 2004118476

PATIENT
  Age: 73 Year
  Sex: Female

DRUGS (7)
  1. COLESTID [Suspect]
     Indication: LIPID METABOLISM DISORDER
     Dosage: 10 GRAM (5 GRAM, TWICE DAILY), ORAL
     Route: 048
     Dates: start: 20040616, end: 20040624
  2. MODURETIC ^MSD^ (AMILORIDE HYDROCHLORIDE, HYDROCHLOROTHIAZIDE) [Concomitant]
  3. ATENOLOL [Concomitant]
  4. AMLODIPINE [Concomitant]
  5. TROSPIUM CHLORIDE (TROSPIUM CHLORIDE) [Concomitant]
  6. OMEPRAZOLE [Concomitant]
  7. CALCIUM (CALCIUM) [Concomitant]

REACTIONS (1)
  - HEPATITIS [None]
